FAERS Safety Report 24932879 (Version 1)
Quarter: 2025Q1

REPORT INFORMATION
  Report Type: Spontaneous
  Country: NL (occurrence: NL)
  Receive Date: 20250205
  Receipt Date: 20250205
  Transmission Date: 20250408
  Serious: Yes (Other)
  Sender: BOEHRINGER INGELHEIM
  Company Number: NL-BoehringerIngelheim-2025-BI-005872

PATIENT
  Age: 77 Year
  Sex: Male

DRUGS (4)
  1. OFEV [Suspect]
     Active Substance: NINTEDANIB
     Indication: Idiopathic pulmonary fibrosis
     Dates: start: 2021, end: 202412
  2. CODEINE [Concomitant]
     Active Substance: CODEINE
     Indication: Cough
     Dates: start: 2022
  3. OXYCODONE [Concomitant]
     Active Substance: OXYCODONE
     Indication: Product used for unknown indication
     Dates: start: 2024
  4. OXYGEN [Concomitant]
     Active Substance: OXYGEN
     Indication: Product used for unknown indication

REACTIONS (5)
  - Idiopathic pulmonary fibrosis [Not Recovered/Not Resolved]
  - Aortic dilatation [Unknown]
  - Pneumonia [Unknown]
  - Weight decreased [Unknown]
  - Decreased appetite [Unknown]

NARRATIVE: CASE EVENT DATE: 20220101
